FAERS Safety Report 4437577-6 (Version None)
Quarter: 2004Q3

REPORT INFORMATION
  Report Type: 
  Country: None (occurrence: None)
  Receive Date: 20040827
  Receipt Date: 20040820
  Transmission Date: 20050211
  Serious: Yes (Other)
  Sender: FDA-Public Use
  Company Number: HQWYE481923AUG04

PATIENT
  Age: 32 Year
  Sex: Female
  Weight: 59.02 kg

DRUGS (5)
  1. EFFEXOR XR [Suspect]
     Indication: DEPRESSION
     Dosage: ORAL; SEE IMAGE
     Route: 048
     Dates: start: 20040101, end: 20040101
  2. EFFEXOR XR [Suspect]
     Indication: DEPRESSION
     Dosage: ORAL; SEE IMAGE
     Route: 048
     Dates: start: 20040801, end: 20040801
  3. EFFEXOR XR [Suspect]
     Indication: DEPRESSION
     Dosage: ORAL; SEE IMAGE
     Route: 048
     Dates: start: 20040101, end: 20040816
  4. WELLBUTRIN [Concomitant]
  5. ETHANOL (ETHANOL) [Concomitant]

REACTIONS (16)
  - ALCOHOL USE [None]
  - ALCOHOL WITHDRAWAL SYNDROME [None]
  - DIZZINESS [None]
  - DRUG WITHDRAWAL SYNDROME [None]
  - DYSKINESIA [None]
  - HEADACHE [None]
  - HEARING IMPAIRED [None]
  - MEDICATION ERROR [None]
  - MENTAL IMPAIRMENT [None]
  - PAIN [None]
  - TINNITUS [None]
  - TREATMENT NONCOMPLIANCE [None]
  - TREMOR [None]
  - VOMITING [None]
  - WEIGHT DECREASED [None]
  - WEIGHT INCREASED [None]
